FAERS Safety Report 9908064 (Version 1)
Quarter: 2014Q1

REPORT INFORMATION
  Report Type: Spontaneous
  Country: US (occurrence: None)
  Receive Date: 20140212
  Receipt Date: 20140212
  Transmission Date: 20141002
  Serious: Yes (Disabling)
  Sender: FDA-Public Use
  Company Number: None

PATIENT
  Age: 40 Year
  Sex: Female
  Weight: 69.4 kg

DRUGS (1)
  1. ABILIFY [Suspect]
     Indication: DEPRESSION
     Dosage: TAKEN BY MOUTH

REACTIONS (6)
  - Memory impairment [None]
  - Dyskinesia [None]
  - Middle insomnia [None]
  - Pain in extremity [None]
  - Thought blocking [None]
  - Unevaluable event [None]
